FAERS Safety Report 7558833-9 (Version None)
Quarter: 2011Q2

REPORT INFORMATION
  Report Type: 
  Country: None (occurrence: None)
  Receive Date: 20110621
  Receipt Date: 20110607
  Transmission Date: 20111010
  Serious: Yes (Hospitalization)
  Sender: FDA-Public Use
  Company Number: DE-ROCHE-783337

PATIENT
  Sex: Female
  Weight: 91 kg

DRUGS (4)
  1. FUROSEMIDE [Concomitant]
     Indication: OEDEMA
     Route: 048
  2. SIMVASTATIN [Concomitant]
     Indication: HYPERLIPIDAEMIA
     Route: 048
  3. TRASTUZUMAB [Suspect]
     Indication: BREAST CANCER
     Route: 042
     Dates: start: 20110427, end: 20110518
  4. LOSARTAN POTASSIUM AND HYDROCHLOROTHIAZIDE [Concomitant]
     Indication: HYPERTENSION
     Route: 048

REACTIONS (7)
  - DYSPNOEA [None]
  - FATIGUE [None]
  - WEIGHT INCREASED [None]
  - OEDEMA [None]
  - CARDIAC FAILURE [None]
  - GENERAL PHYSICAL HEALTH DETERIORATION [None]
  - CARDIAC HYPERTROPHY [None]
